FAERS Safety Report 21792012 (Version 1)
Quarter: 2022Q4

REPORT INFORMATION
  Report Type: Spontaneous
  Country: SE (occurrence: SE)
  Receive Date: 20221229
  Receipt Date: 20221229
  Transmission Date: 20230112
  Serious: Yes (Other)
  Sender: FDA-Public Use
  Company Number: None

PATIENT
  Age: 65 Year
  Sex: Female
  Weight: 82 kg

DRUGS (2)
  1. OZEMPIC [Suspect]
     Active Substance: SEMAGLUTIDE
     Indication: Product used for unknown indication
     Dosage: FIRST DOSE, 1 DOSE/WEEK
     Route: 058
     Dates: start: 20221109, end: 20221109
  2. METOPROLOL 1A FARMA RETARD [Concomitant]
     Indication: Product used for unknown indication
     Dosage: 100 MG, QD (100 MG 1X1)
     Route: 048

REACTIONS (4)
  - Pharyngeal swelling [Recovered/Resolved]
  - Catastrophic reaction [Recovered/Resolved]
  - Palpitations [Recovered/Resolved]
  - Nausea [Recovered/Resolved]

NARRATIVE: CASE EVENT DATE: 20221109
